FAERS Safety Report 6086154-2 (Version None)
Quarter: 2009Q1

REPORT INFORMATION
  Report Type: 
  Country: None (occurrence: None)
  Receive Date: 20090217
  Receipt Date: 20090217
  Transmission Date: 20090719
  Serious: Yes (Life-Threatening)
  Sender: FDA-Public Use
  Company Number: None

PATIENT
  Age: 63 Year
  Sex: Female
  Weight: 58.0604 kg

DRUGS (2)
  1. XOPENEX HFA [Suspect]
     Indication: ASTHMA
     Dosage: ONE DOSE
     Dates: start: 20061110, end: 20061110
  2. XOPENEX HFA [Suspect]
     Indication: ASTHMA
     Dosage: ONE DOSE
     Dates: start: 20061210, end: 20061210

REACTIONS (6)
  - DIZZINESS [None]
  - DYSGEUSIA [None]
  - HYPERSENSITIVITY [None]
  - NAUSEA [None]
  - PRESYNCOPE [None]
  - PRODUCT QUALITY ISSUE [None]
